FAERS Safety Report 9153667 (Version 3)
Quarter: 2013Q2

REPORT INFORMATION
  Report Type: Spontaneous
  Country: JP (occurrence: JP)
  Receive Date: 20130311
  Receipt Date: 20130624
  Transmission Date: 20140414
  Serious: Yes (Hospitalization, Other)
  Sender: FDA-Public Use
  Company Number: PHHY2013JP023099

PATIENT
  Age: 74 Year
  Sex: Male
  Weight: 65 kg

DRUGS (6)
  1. LOCHOL [Suspect]
     Indication: HYPERLIPIDAEMIA
     Dosage: 20 MG, UNK
     Route: 048
     Dates: start: 200403, end: 20130305
  2. DIOVAN [Concomitant]
     Indication: HYPERTENSION
     Dosage: 80 MG, UNK
     Route: 048
     Dates: start: 200403, end: 20130303
  3. KALLIKREIN [Concomitant]
     Indication: HYPERTENSION
     Dosage: 30 IU, UNK
     Route: 048
     Dates: start: 200403, end: 20130303
  4. CONIEL [Concomitant]
     Indication: HYPERTENSION
     Dosage: 4 MG, UNK
     Route: 048
     Dates: start: 200403, end: 20130303
  5. BICALUTAMIDE [Concomitant]
     Indication: PROSTATE CANCER
     Dosage: 80 MG, UNK
     Dates: start: 20091204, end: 20130303
  6. LEUPLIN [Concomitant]
     Indication: PROSTATE CANCER
     Dosage: 3.75 MG, UNK
     Route: 058
     Dates: start: 20091204

REACTIONS (6)
  - Rhabdomyolysis [Recovered/Resolved]
  - General physical health deterioration [Unknown]
  - Influenza [Unknown]
  - Fall [Unknown]
  - Thoracic vertebral fracture [Unknown]
  - Pyrexia [Recovered/Resolved]
